FAERS Safety Report 8063083-6 (Version None)
Quarter: 2012Q1

REPORT INFORMATION
  Report Type: 
  Country: None (occurrence: None)
  Receive Date: 20120123
  Receipt Date: 20111231
  Transmission Date: 20120608
  Serious: Yes (Other)
  Sender: FDA-Public Use
  Company Number: FR-ROCHE-1032548

PATIENT
  Sex: Female
  Weight: 58.067 kg

DRUGS (3)
  1. DESLORATADINE [Concomitant]
     Dates: start: 20080420
  2. FLUTICASONE PROPIONATE/SALMETEROL [Concomitant]
     Dates: start: 20080420
  3. XOLAIR [Suspect]
     Indication: ASTHMA
     Route: 058
     Dates: start: 20110901

REACTIONS (1)
  - ASTHMATIC CRISIS [None]
